FAERS Safety Report 19166813 (Version 1)
Quarter: 2021Q2

REPORT INFORMATION
  Report Type: Spontaneous
  Country: NL (occurrence: NL)
  Receive Date: 20210422
  Receipt Date: 20210422
  Transmission Date: 20210717
  Serious: Yes (Other)
  Sender: FDA-Public Use
  Company Number: NL-TEVA-2021-NL-1902845

PATIENT
  Sex: Male
  Weight: 90 kg

DRUGS (1)
  1. DEXAMETHASON TABLET 1,5MG / BRAND NAME NOT SPECIFIED [Suspect]
     Active Substance: DEXAMETHASONE
     Indication: CORONAVIRUS INFECTION
     Dosage: 6 MILLIGRAM DAILY;  THERAPY END DATE: ASKU
     Route: 065
     Dates: start: 20210213

REACTIONS (3)
  - Insomnia [Recovering/Resolving]
  - Hallucination [Recovering/Resolving]
  - Psychomotor hyperactivity [Recovering/Resolving]
